APPROVED DRUG PRODUCT: OXYCODONE HYDROCHLORIDE
Active Ingredient: OXYCODONE HYDROCHLORIDE
Strength: 100MG/5ML
Dosage Form/Route: SOLUTION;ORAL
Application: A204603 | Product #001
Applicant: NOVEL LABORATORIES INC
Approved: Apr 29, 2015 | RLD: No | RS: No | Type: DISCN